FAERS Safety Report 5189686-4 (Version None)
Quarter: 2006Q4

REPORT INFORMATION
  Report Type: 
  Country: None (occurrence: None)
  Receive Date: 20061215
  Receipt Date: 20061130
  Transmission Date: 20070319
  Serious: Yes (Death)
  Sender: FDA-Public Use
  Company Number: 233053

PATIENT
  Age: 58 Year
  Sex: Male
  Weight: 90.7 kg

DRUGS (2)
  1. BEVACIZUMAB(BEVACIZUMAB) PWDR + SOLVENT,INFUSION SOLN, 100MG [Suspect]
     Indication: GLIOBLASTOMA MULTIFORME
     Dosage: 907.2, Q2W, INTRAVENOUS
     Route: 042
     Dates: start: 20060901, end: 20061121
  2. IRINOTECAN HCL [Suspect]
     Indication: GLIOBLASTOMA MULTIFORME
     Dosage: 255, Q2W, INTRAVENOUS
     Route: 042
     Dates: start: 20060901, end: 20061121

REACTIONS (3)
  - CONVULSION [None]
  - DEPRESSION [None]
  - MALAISE [None]
